FAERS Safety Report 14379819 (Version 1)
Quarter: 2018Q1

REPORT INFORMATION
  Report Type: Spontaneous
  Country: US (occurrence: US)
  Receive Date: 20180112
  Receipt Date: 20180112
  Transmission Date: 20180509
  Serious: No
  Sender: FDA-Public Use
  Company Number: US-PFIZER INC-2018008824

PATIENT
  Age: 13 Year
  Sex: Female

DRUGS (2)
  1. AMOXICILLIN. [Suspect]
     Active Substance: AMOXICILLIN
     Indication: EAR INFECTION
     Dosage: UNK
  2. EUCRISA [Suspect]
     Active Substance: CRISABOROLE
     Indication: ECZEMA
     Dosage: UNK
     Route: 061

REACTIONS (6)
  - Peripheral swelling [Unknown]
  - Joint range of motion decreased [Unknown]
  - Drug hypersensitivity [Unknown]
  - Swelling face [Unknown]
  - Application site discharge [Unknown]
  - Erythema [Unknown]
